FAERS Safety Report 8725753 (Version 3)
Quarter: 2019Q4

REPORT INFORMATION
  Report Type: Spontaneous
  Country: BR (occurrence: BR)
  Receive Date: 20120816
  Receipt Date: 20191227
  Transmission Date: 20200122
  Serious: Yes (Other)
  Sender: FDA-Public Use
  Company Number: BR-AMGEN-BRASP2012051259

PATIENT
  Age: 62 Year
  Sex: Male
  Weight: 104 kg

DRUGS (7)
  1. BENICAR [Concomitant]
     Active Substance: OLMESARTAN MEDOXOMIL
     Indication: HYPERTENSION
     Dosage: UNK
  2. METHOTREXATE. [Concomitant]
     Active Substance: METHOTREXATE
     Dosage: UNK
  3. ASPIRINA [Concomitant]
     Active Substance: ASPIRIN
     Dosage: UNK
  4. EPHYNAL [TOCOPHERYL ACETATE] [Concomitant]
     Dosage: UNK
  5. ENBREL [Suspect]
     Active Substance: ETANERCEPT
     Indication: ANKYLOSING SPONDYLITIS
     Dosage: 50 MILLIGRAM, QWK
     Route: 058
     Dates: start: 201112
  6. ENDOFOLIN [Concomitant]
     Active Substance: FOLIC ACID
     Dosage: UNK
  7. ENBREL [Suspect]
     Active Substance: ETANERCEPT
     Dosage: UNK
     Route: 065
     Dates: start: 2016

REACTIONS (6)
  - Feeling abnormal [Unknown]
  - Throat irritation [Unknown]
  - Nasopharyngitis [Unknown]
  - Influenza [Unknown]
  - Immunosuppression [Unknown]
  - Cough [Unknown]
